FAERS Safety Report 6917469-0 (Version None)
Quarter: 2010Q3

REPORT INFORMATION
  Report Type: 
  Country: None (occurrence: None)
  Receive Date: 20100806
  Receipt Date: 20100727
  Transmission Date: 20110219
  Serious: Yes (Hospitalization)
  Sender: FDA-Public Use
  Company Number: 7012569

PATIENT
  Sex: Female

DRUGS (1)
  1. REBIF [Suspect]
     Dosage: 44 MCG
     Dates: start: 20010123

REACTIONS (6)
  - CONDITION AGGRAVATED [None]
  - DEATH OF RELATIVE [None]
  - FEELING ABNORMAL [None]
  - MULTIPLE SCLEROSIS [None]
  - PARTNER STRESS [None]
  - URINARY TRACT INFECTION [None]
